FAERS Safety Report 5143413-5 (Version None)
Quarter: 2006Q4

REPORT INFORMATION
  Report Type: 
  Country: None (occurrence: None)
  Receive Date: 20061030
  Receipt Date: 20061017
  Transmission Date: 20070319
  Serious: Yes (Congenital Anomaly)
  Sender: FDA-Public Use
  Company Number: 2006127335

PATIENT
  Age: 74 Year
  Sex: Male

DRUGS (3)
  1. LYRICA [Suspect]
     Indication: BACK PAIN
     Dosage: (150 MG (75 MG, 2 IN 1D)
  2. CLONAZEPAM [Concomitant]
  3. AMITRIPTYLINE HYDROCHLORIDE [Concomitant]

REACTIONS (3)
  - AGITATION [None]
  - HYPOMANIA [None]
  - INSOMNIA [None]
